FAERS Safety Report 25629287 (Version 2)
Quarter: 2025Q3

REPORT INFORMATION
  Report Type: Spontaneous
  Country: US (occurrence: US)
  Receive Date: 20250731
  Receipt Date: 20250805
  Transmission Date: 20251021
  Serious: No
  Sender: SANOFI AVENTIS
  Company Number: US-SANOFI-02606299

PATIENT
  Age: 88 Year
  Sex: Female

DRUGS (1)
  1. MULTAQ [Suspect]
     Active Substance: DRONEDARONE
     Indication: Atrial fibrillation
     Dosage: 400 MG, BID
     Route: 065
     Dates: start: 2024

REACTIONS (5)
  - Platelet count decreased [Unknown]
  - Skin haemorrhage [Unknown]
  - Blood blister [Unknown]
  - Platelet aggregation abnormal [Unknown]
  - Rash [Recovered/Resolved]
